FAERS Safety Report 6395359-2 (Version None)
Quarter: 2009Q4

REPORT INFORMATION
  Report Type: 
  Country: None (occurrence: None)
  Receive Date: 20091009
  Receipt Date: 20090930
  Transmission Date: 20100525
  Serious: Yes (Other)
  Sender: FDA-Public Use
  Company Number: BR-ABBOTT-09P-020-0600179-00

PATIENT
  Sex: Female
  Weight: 70 kg

DRUGS (4)
  1. HUMIRA [Suspect]
     Indication: RHEUMATOID ARTHRITIS
     Route: 058
  2. DEFLAZACORT [Concomitant]
     Indication: RHEUMATOID ARTHRITIS
     Route: 048
  3. ATENOLOL [Concomitant]
     Indication: BLOOD PRESSURE
     Route: 048
     Dates: start: 20070101
  4. CAFFEINE, CARISOPRODO,L DICLOFENAC SODIUM, PARACETAMOL (TORSILAX) [Concomitant]
     Indication: PAIN IN EXTREMITY
     Route: 048
     Dates: start: 20060101

REACTIONS (3)
  - DEVICE DISLOCATION [None]
  - JOINT EFFUSION [None]
  - STAPHYLOCOCCAL INFECTION [None]
